FAERS Safety Report 9990233 (Version 1)
Quarter: 2014Q1

REPORT INFORMATION
  Report Type: Report from Study
  Country: US (occurrence: US)
  Receive Date: 20140310
  Receipt Date: 20140310
  Transmission Date: 20141002
  Serious: No
  Sender: FDA-Public Use
  Company Number: US-ABBVIE-13P-163-1136310-00

PATIENT
  Age: 35 Year
  Sex: Female
  Weight: 95.34 kg

DRUGS (10)
  1. HUMIRA [Suspect]
     Indication: CROHN^S DISEASE
     Dosage: DAY 1
     Route: 058
  2. HUMIRA [Suspect]
     Dosage: DAY 15, AS DIRECTED
     Route: 058
  3. MAXALT [Concomitant]
     Indication: PRODUCT USED FOR UNKNOWN INDICATION
  4. ZYRTEC [Concomitant]
     Indication: PRODUCT USED FOR UNKNOWN INDICATION
     Dosage: CHW
  5. FLONASE [Concomitant]
     Indication: PRODUCT USED FOR UNKNOWN INDICATION
     Dosage: SPRAY
  6. VITAMIN E [Concomitant]
     Indication: PRODUCT USED FOR UNKNOWN INDICATION
  7. VITAMIN B [Concomitant]
     Indication: PRODUCT USED FOR UNKNOWN INDICATION
  8. MULTIVITAMIN [Concomitant]
     Indication: PRODUCT USED FOR UNKNOWN INDICATION
  9. LIALDA [Concomitant]
     Indication: PRODUCT USED FOR UNKNOWN INDICATION
  10. PROBIOTIC [Concomitant]
     Indication: PRODUCT USED FOR UNKNOWN INDICATION

REACTIONS (1)
  - Fatigue [Unknown]
